FAERS Safety Report 12623196 (Version 2)
Quarter: 2016Q3

REPORT INFORMATION
  Report Type: Report from Study
  Country: US (occurrence: US)
  Receive Date: 20160804
  Receipt Date: 20160914
  Transmission Date: 20161109
  Serious: Yes (Hospitalization)
  Sender: FDA-Public Use
  Company Number: US-ARIAD PHARMACEUTICALS, INC-2016US006790

PATIENT
  Sex: Male
  Weight: 96.15 kg

DRUGS (2)
  1. ICLUSIG [Suspect]
     Active Substance: PONATINIB
     Indication: CHRONIC MYELOID LEUKAEMIA
     Dosage: 15 MG, TID
     Route: 048
     Dates: start: 20150225
  2. ICLUSIG [Suspect]
     Active Substance: PONATINIB
     Dosage: 15 MG, QD
     Route: 048

REACTIONS (1)
  - Dehydration [Not Recovered/Not Resolved]
